FAERS Safety Report 4360748-4 (Version None)
Quarter: 2004Q2

REPORT INFORMATION
  Report Type: 
  Country: None (occurrence: None)
  Receive Date: 20040519
  Receipt Date: 20040519
  Transmission Date: 20050107
  Serious: Yes (Other)
  Sender: FDA-Public Use
  Company Number: None

PATIENT
  Age: 48 Year
  Sex: Female
  Weight: 62 kg

DRUGS (5)
  1. FLUORESCEIN [Suspect]
     Indication: ANGIOGRAM
     Dosage: 5ML IVP X 1
     Route: 042
     Dates: start: 20030911
  2. DIPHENHYDRAMINE HCL [Concomitant]
  3. PHENERGAN [Concomitant]
  4. MEDROL [Concomitant]
  5. BENADRYL/PHEN [Concomitant]

REACTIONS (3)
  - NAUSEA [None]
  - URTICARIA [None]
  - VOMITING [None]
